FAERS Safety Report 25536956 (Version 1)
Quarter: 2025Q3

REPORT INFORMATION
  Report Type: Spontaneous
  Country: TR (occurrence: None)
  Receive Date: 20250710
  Receipt Date: 20250710
  Transmission Date: 20251021
  Serious: Yes (Hospitalization)
  Sender: MDD OPERATIONS
  Company Number: TR-MDD US Operations-MDD202507-002353

PATIENT
  Age: 34 Year
  Sex: Female

DRUGS (10)
  1. APOMORPHINE HYDROCHLORIDE [Suspect]
     Active Substance: APOMORPHINE HYDROCHLORIDE
     Indication: Parkinsonism
     Route: 058
  2. APOMORPHINE HYDROCHLORIDE [Suspect]
     Active Substance: APOMORPHINE HYDROCHLORIDE
     Route: 058
  3. AMANTADINE HYDROCHLORIDE [Suspect]
     Active Substance: AMANTADINE HYDROCHLORIDE
     Indication: Neuroleptic malignant syndrome
     Route: 048
  4. DIAZEPAM [Concomitant]
     Active Substance: DIAZEPAM
     Indication: Neuroleptic malignant syndrome
     Route: 042
  5. LORAZEPAM [Concomitant]
     Active Substance: LORAZEPAM
     Indication: Neuroleptic malignant syndrome
  6. LORAZEPAM [Concomitant]
     Active Substance: LORAZEPAM
  7. BROMOCRIPTINE [Concomitant]
     Active Substance: BROMOCRIPTINE
     Indication: Neuroleptic malignant syndrome
  8. BROMOCRIPTINE [Concomitant]
     Active Substance: BROMOCRIPTINE
  9. DOMPERIDONE [Concomitant]
     Active Substance: DOMPERIDONE
     Indication: Parkinsonism
  10. DANTROLENE [Concomitant]
     Active Substance: DANTROLENE

REACTIONS (4)
  - Catatonia [Recovering/Resolving]
  - Psychotic symptom [Recovering/Resolving]
  - Blood creatinine increased [Unknown]
  - Product use in unapproved indication [Unknown]
